FAERS Safety Report 6131963-4 (Version None)
Quarter: 2009Q1

REPORT INFORMATION
  Report Type: 
  Country: None (occurrence: None)
  Receive Date: 20090325
  Receipt Date: 20090318
  Transmission Date: 20090719
  Serious: Yes (Life-Threatening, Hospitalization, Disabling, Other)
  Sender: FDA-Public Use
  Company Number: RU-CELGENEUS-251-21880-09031150

PATIENT
  Sex: Male
  Weight: 76 kg

DRUGS (5)
  1. REVLIMID [Suspect]
     Indication: MULTIPLE MYELOMA
     Route: 048
     Dates: start: 20090218, end: 20090310
  2. CARDIOMAGNYL [Concomitant]
     Route: 048
     Dates: start: 20080915
  3. PREDUCTAL [Concomitant]
     Route: 048
     Dates: start: 20080915
  4. PRESTARIUM [Concomitant]
     Route: 048
     Dates: start: 20080915
  5. NEBILET [Concomitant]
     Route: 048
     Dates: start: 20080915

REACTIONS (2)
  - ARTERIAL THROMBOSIS LIMB [None]
  - DEEP VEIN THROMBOSIS [None]
